FAERS Safety Report 24195556 (Version 1)
Quarter: 2024Q3

REPORT INFORMATION
  Report Type: Spontaneous
  Country: US (occurrence: None)
  Receive Date: 20240809
  Receipt Date: 20240809
  Transmission Date: 20241016
  Serious: No
  Sender: Public
  Company Number: None

PATIENT
  Sex: Female

DRUGS (1)
  1. LENALIDOMIDE [Suspect]
     Active Substance: LENALIDOMIDE
     Indication: Monoclonal gammopathy
     Dosage: OTHER FREQUENCY : DAILY 21 ON /7 OFF;?
     Route: 048
     Dates: start: 202404

REACTIONS (2)
  - Rash [None]
  - Therapy interrupted [None]
